FAERS Safety Report 12440197 (Version 1)
Quarter: 2016Q2

REPORT INFORMATION
  Report Type: Spontaneous
  Country: US (occurrence: US)
  Receive Date: 20160606
  Receipt Date: 20160606
  Transmission Date: 20160815
  Serious: No
  Sender: FDA-Public Use
  Company Number: US-AMGEN-USASP2015121400

PATIENT
  Age: 41 Year
  Sex: Male

DRUGS (2)
  1. EPOGEN [Suspect]
     Active Substance: ERYTHROPOIETIN
     Indication: PRODUCT USED FOR UNKNOWN INDICATION
     Dosage: 15000 UNK, 3 TIMES/WK
     Route: 065
     Dates: start: 20150608, end: 20150912
  2. EPOGEN [Suspect]
     Active Substance: ERYTHROPOIETIN
     Dosage: 20000 UNK, 3 TIMES/WK
     Route: 065
     Dates: start: 20151006

REACTIONS (2)
  - Therapeutic response decreased [Unknown]
  - Haemoglobin decreased [Unknown]

NARRATIVE: CASE EVENT DATE: 2015
